FAERS Safety Report 5119965-8 (Version None)
Quarter: 2006Q3

REPORT INFORMATION
  Report Type: 
  Country: None (occurrence: None)
  Receive Date: 20060929
  Receipt Date: 20060920
  Transmission Date: 20061208
  Serious: Yes (Other)
  Sender: FDA-Public Use
  Company Number: 2006105392

PATIENT
  Sex: Male
  Weight: 95 kg

DRUGS (3)
  1. NEURONTIN [Suspect]
     Dosage: 900 MG (300 MG, 3 IN 1 D), ORAL
     Route: 048
  2. AMITRIPTYLINE HCL [Concomitant]
  3. ZYDOL (TRAMADOL HYDROCHLORIDE) [Concomitant]

REACTIONS (4)
  - BURNING SENSATION [None]
  - NIGHT SWEATS [None]
  - PAIN [None]
  - PYREXIA [None]
